FAERS Safety Report 22361987 (Version 2)
Quarter: 2023Q2

REPORT INFORMATION
  Report Type: Report from Study
  Country: RU (occurrence: RU)
  Receive Date: 20230524
  Receipt Date: 20230605
  Transmission Date: 20230721
  Serious: Yes (Other)
  Sender: FDA-Public Use
  Company Number: RU-002147023-NVSC2023RU098577

PATIENT
  Age: 0 Year
  Sex: Male
  Weight: 9 kg

DRUGS (1)
  1. ZOLGENSMA [Suspect]
     Active Substance: ONASEMNOGENE ABEPARVOVEC-XIOI
     Indication: Spinal muscular atrophy
     Dosage: 49.6 ML, ONCE/SINGLE (ADMINISTERED ONCE)
     Route: 041
     Dates: start: 20230330, end: 20230330

REACTIONS (14)
  - Retching [Recovering/Resolving]
  - Peripheral swelling [Recovered/Resolved]
  - Blood lactate dehydrogenase increased [Unknown]
  - Blood uric acid increased [Unknown]
  - Platelet count increased [Unknown]
  - Gamma-glutamyltransferase increased [Unknown]
  - Blood creatinine decreased [Unknown]
  - Troponin increased [Unknown]
  - Alanine aminotransferase increased [Not Recovered/Not Resolved]
  - Aspartate aminotransferase increased [Not Recovered/Not Resolved]
  - Body temperature increased [Recovered/Resolved]
  - Body temperature increased [Unknown]
  - Vomiting [Recovered/Resolved]
  - Device issue [Recovering/Resolving]

NARRATIVE: CASE EVENT DATE: 20230330
